FAERS Safety Report 23980888 (Version 7)
Quarter: 2025Q2

REPORT INFORMATION
  Report Type: Report from Study
  Country: US (occurrence: US)
  Receive Date: 20240617
  Receipt Date: 20250612
  Transmission Date: 20250717
  Serious: Yes (Hospitalization, Other)
  Sender: ASTELLAS
  Company Number: US-ASTELLAS-2024US013309

PATIENT
  Age: 81 Year
  Sex: Male

DRUGS (4)
  1. ENZALUTAMIDE [Suspect]
     Active Substance: ENZALUTAMIDE
     Indication: Prostate cancer metastatic
     Dosage: 160 MG (40 MG X 4 TABLETS), ONCE DAILY
     Route: 048
     Dates: start: 20240316
  2. ORGOVYX [Suspect]
     Active Substance: RELUGOLIX
     Indication: Prostate cancer
     Dosage: 120 MG, ONCE DAILY
     Route: 048
     Dates: start: 20240803
  3. NUBEQA [Concomitant]
     Active Substance: DAROLUTAMIDE
     Indication: Prostate cancer
     Dosage: 600 MG, TWICE DAILY ONGOING
     Route: 065
     Dates: start: 20240803
  4. METFORMIN [Concomitant]
     Active Substance: METFORMIN HYDROCHLORIDE
     Indication: Product used for unknown indication
     Route: 065

REACTIONS (10)
  - Diabetes mellitus [Not Recovered/Not Resolved]
  - Pain in extremity [Not Recovered/Not Resolved]
  - Fatigue [Not Recovered/Not Resolved]
  - Asthenia [Unknown]
  - Fall [Unknown]
  - Irritability [Unknown]
  - Muscular weakness [Unknown]
  - Pollakiuria [Unknown]
  - Abdominal pain upper [Unknown]
  - Dizziness [Unknown]

NARRATIVE: CASE EVENT DATE: 20240301
